FAERS Safety Report 10205181 (Version 1)
Quarter: 2014Q2

REPORT INFORMATION
  Report Type: Report from Study
  Country: IT (occurrence: IT)
  Receive Date: 20140529
  Receipt Date: 20140529
  Transmission Date: 20141212
  Serious: Yes (Other)
  Sender: FDA-Public Use
  Company Number: IT-SA-2014SA066715

PATIENT
  Sex: Male

DRUGS (10)
  1. ANTI-THYMOCYTE GLOBULIN (RABBIT) [Suspect]
     Indication: BONE MARROW CONDITIONING REGIMEN
     Route: 065
  2. CYCLOPHOSPHAMIDE [Suspect]
     Indication: BONE MARROW CONDITIONING REGIMEN
     Route: 065
  3. GRANULOCYTE COLONY-STIMULATING FACTOR NOS [Concomitant]
  4. BLOOD AND RELATED PRODUCTS [Concomitant]
  5. CYCLOPHOSPHAMIDE [Concomitant]
     Dosage: DOSE:1.5 GRAM(S)/SQUARE METER
  6. ANTIEMETICS AND ANTINAUSEANTS [Concomitant]
  7. LEVOFLOXACIN [Concomitant]
     Indication: PROPHYLAXIS
     Route: 048
  8. FLUCONAZOLE [Concomitant]
     Indication: PROPHYLAXIS
  9. ACICLOVIR [Concomitant]
     Indication: PROPHYLAXIS
  10. BLOOD TRANSFUSION, AUXILIARY PRODUCTS [Concomitant]

REACTIONS (3)
  - Pleural effusion [Recovered/Resolved]
  - Pericardial effusion [Recovered/Resolved]
  - Off label use [Unknown]
